FAERS Safety Report 4978400-0 (Version None)
Quarter: 2006Q2

REPORT INFORMATION
  Report Type: 
  Country: None (occurrence: None)
  Receive Date: 20060417
  Receipt Date: 20060331
  Transmission Date: 20061013
  Serious: Yes (Other)
  Sender: FDA-Public Use
  Company Number: 8015904

PATIENT
  Age: 17 Year
  Sex: Female
  Weight: 55 kg

DRUGS (3)
  1. KEPPRA [Suspect]
     Indication: PARTIAL SEIZURES
     Dosage: 100 MG 2/D PO
     Route: 048
     Dates: start: 20041220
  2. TOPAMAX [Suspect]
     Indication: PARTIAL SEIZURES
     Dosage: 50 MG 2/D PO
     Route: 048
     Dates: start: 20050319, end: 20051130
  3. TEGRETOL [Suspect]
     Indication: PARTIAL SEIZURES
     Dosage: 500 MG 2/D PO
     Route: 048
     Dates: start: 20040520, end: 20041215

REACTIONS (2)
  - DRUG EXPOSURE DURING PREGNANCY [None]
  - UNINTENDED PREGNANCY [None]
